FAERS Safety Report 15701746 (Version 1)
Quarter: 2018Q4

REPORT INFORMATION
  Report Type: Spontaneous
  Country: JP (occurrence: JP)
  Receive Date: 20181208
  Receipt Date: 20181208
  Transmission Date: 20190205
  Serious: Yes (Death, Other)
  Sender: FDA-Public Use
  Company Number: JP-AMGEN-JPNSP2018175945

PATIENT
  Age: 72 Year
  Sex: Female
  Weight: 56 kg

DRUGS (1)
  1. RANMARK [Suspect]
     Active Substance: DENOSUMAB
     Indication: METASTASES TO BONE
     Dosage: 1 DF, UNK
     Route: 058
     Dates: start: 20120226, end: 20140618

REACTIONS (2)
  - Intraventricular haemorrhage [Fatal]
  - Osteonecrosis of jaw [Unknown]

NARRATIVE: CASE EVENT DATE: 20140227
